FAERS Safety Report 16650827 (Version 2)
Quarter: 2020Q2

REPORT INFORMATION
  Report Type: Report from Study
  Country: KR (occurrence: KR)
  Receive Date: 20190731
  Receipt Date: 20200519
  Transmission Date: 20200713
  Serious: Yes (Hospitalization, Other)
  Sender: FDA-Public Use
  Company Number: KR-GLAXOSMITHKLINE-KR2019GSK138106

PATIENT
  Age: 60 Year
  Sex: Male
  Weight: 79 kg

DRUGS (14)
  1. MONTERIZINE [Concomitant]
     Indication: RHINITIS ALLERGIC
     Dosage: 1 DF, QD
     Route: 048
     Dates: start: 20190114
  2. ASPIRIN. [Concomitant]
     Active Substance: ASPIRIN
     Indication: ATRIAL FIBRILLATION
     Dosage: 100 MG, QD
     Route: 048
     Dates: start: 20190116, end: 20190208
  3. ZEMIGLO [Concomitant]
     Indication: TYPE 2 DIABETES MELLITUS
     Dosage: 50 MG, QD
     Route: 048
  4. FLUTICASONE FUROATE + VILANTEROL TRIFENATATE [Suspect]
     Active Substance: FLUTICASONE FUROATE\VILANTEROL TRIFENATATE
     Indication: ASTHMA
     Dosage: 1 PUFF(S), QD, 200/25 UG
     Route: 055
     Dates: start: 20190114
  5. DILATREND [Concomitant]
     Active Substance: CARVEDILOL
     Indication: HYPERTENSION
     Dosage: 25 MG, QD
     Route: 048
  6. COUGH SYRUP [Concomitant]
     Active Substance: DEXTROMETHORPHAN HYDROBROMIDE\GUAIFENESIN
     Indication: ASTHMA
     Dosage: UNK, TID
     Route: 048
     Dates: start: 20190114, end: 20190220
  7. NORVASC [Concomitant]
     Active Substance: AMLODIPINE BESYLATE
     Indication: HYPERTENSION
     Dosage: 5 MG, BID
     Route: 048
  8. MYFORTIC [Concomitant]
     Active Substance: MYCOPHENOLATE SODIUM
     Dosage: 180 MG, QD
     Route: 048
  9. ACERTIL [Concomitant]
     Active Substance: PERINDOPRIL
     Indication: HYPERTENSION
     Dosage: 2 MG, QD
     Route: 048
  10. RYTMONORM SR [Concomitant]
     Active Substance: PROPAFENONE
     Indication: ATRIAL FIBRILLATION
     Dosage: 1 DF, QD
     Route: 048
     Dates: start: 20190123, end: 20190208
  11. MYFORTIC [Concomitant]
     Active Substance: MYCOPHENOLATE SODIUM
     Indication: INFECTION PROPHYLAXIS
     Dosage: 360 MG, UNK
     Route: 048
  12. GANAFLUX [Concomitant]
     Indication: GASTROOESOPHAGEAL REFLUX DISEASE
     Dosage: 1 DF, QD
     Route: 048
     Dates: start: 20190114
  13. ADVAGRAF [Concomitant]
     Active Substance: TACROLIMUS
     Indication: INFECTION PROPHYLAXIS
     Dosage: 1 MG, QD
     Route: 048
  14. ADVAGRAF [Concomitant]
     Active Substance: TACROLIMUS
     Dosage: 0.5 MG, QD
     Route: 048

REACTIONS (1)
  - Brain stem infarction [Not Recovered/Not Resolved]

NARRATIVE: CASE EVENT DATE: 20190205
